FAERS Safety Report 10078900 (Version 1)
Quarter: 2014Q2

REPORT INFORMATION
  Report Type: Spontaneous
  Country: US (occurrence: None)
  Receive Date: 20140414
  Receipt Date: 20140414
  Transmission Date: 20141212
  Serious: Yes (Other)
  Sender: FDA-Public Use
  Company Number: None

PATIENT
  Age: 71 Year
  Sex: Male
  Weight: 100 kg

DRUGS (3)
  1. XARELTO [Suspect]
     Indication: DRUG THERAPY
     Dosage: 1 TAB, BID, ORAL
     Route: 048
     Dates: start: 20140411, end: 20140411
  2. XARELTO [Suspect]
     Indication: PULMONARY EMBOLISM
     Dosage: 1 TAB, BID, ORAL
     Route: 048
     Dates: start: 20140411, end: 20140411
  3. WARFARIN [Concomitant]

REACTIONS (1)
  - Haemorrhage urinary tract [None]
